FAERS Safety Report 7844274 (Version 6)
Quarter: 2013Q4

REPORT INFORMATION
  Report Type: Spontaneous
  Country: US (occurrence: US)
  Receive Date: 20110307
  Receipt Date: 20131105
  Transmission Date: 20140711
  Serious: Yes (Hospitalization, Other)
  Sender: FDA-Public Use
  Company Number: US-ASTRAZENECA-2011SE11057

PATIENT
  Age: 70 Year
  Sex: Female

DRUGS (12)
  1. SYMBICORT PMDI [Suspect]
     Dosage: 16.5/4.5 2 PUFFS, BID
     Route: 055
  2. LISINOPRIL [Suspect]
     Indication: HYPERTENSION
     Route: 048
  3. XOPENEX [Concomitant]
  4. FORTEO [Concomitant]
  5. FENTANYL [Concomitant]
  6. OXYGEN [Concomitant]
  7. VENTOLIN [Concomitant]
     Indication: PROPHYLAXIS
  8. ALBUTEROL [Concomitant]
     Indication: PROPHYLAXIS
  9. IPRATROPIUM [Concomitant]
     Indication: PROPHYLAXIS
  10. ALPRAZOLAM [Concomitant]
     Indication: ANXIETY
  11. MIRTAZAPINE [Concomitant]
     Indication: DEPRESSION
  12. MIRTAZAPINE [Concomitant]
     Indication: APPETITE DISORDER

REACTIONS (13)
  - Spinal compression fracture [Unknown]
  - Chronic obstructive pulmonary disease [Unknown]
  - Body height decreased [Unknown]
  - Osteoporosis [Unknown]
  - Sinusitis [Unknown]
  - Sinus disorder [Unknown]
  - Asthma [Unknown]
  - Emphysema [Unknown]
  - Perfume sensitivity [Unknown]
  - Tremor [Unknown]
  - Anxiety [Unknown]
  - Depression [Unknown]
  - Drug hypersensitivity [Unknown]
